FAERS Safety Report 6936488-1 (Version None)
Quarter: 2010Q3

REPORT INFORMATION
  Report Type: 
  Country: None (occurrence: None)
  Receive Date: 20100818
  Receipt Date: 20100804
  Transmission Date: 20110219
  Serious: Yes (Hospitalization)
  Sender: FDA-Public Use
  Company Number: 7013417

PATIENT
  Age: 61 Year
  Sex: Female

DRUGS (2)
  1. REBIF [Suspect]
     Indication: PRODUCT USED FOR UNKNOWN INDICATION
     Dosage: 44 MCG, 3 IN 1 WK, SUBCUTANEOUS
     Route: 058
     Dates: start: 20040506
  2. CLOZARIL [Suspect]
     Indication: SCHIZOPHRENIA
     Dates: end: 20100601

REACTIONS (3)
  - GAIT DISTURBANCE [None]
  - INJECTION SITE DISCOLOURATION [None]
  - SOMNOLENCE [None]
